FAERS Safety Report 7741826-6 (Version None)
Quarter: 2011Q3

REPORT INFORMATION
  Report Type: 
  Country: None (occurrence: None)
  Receive Date: 20110906
  Receipt Date: 20110822
  Transmission Date: 20111222
  Serious: Yes (Death)
  Sender: FDA-Public Use
  Company Number: JP-2011-11278

PATIENT
  Age: 75 Year
  Sex: Male
  Weight: 41 kg

DRUGS (19)
  1. SAMSCA [Suspect]
     Indication: FLUID RETENTION
     Dosage: 15 MG MILLIGRAM(S), QD, ORAL ; 7.5 MG MILLIGRAM(S), QD, ORAL
     Route: 048
     Dates: start: 20110717, end: 20110719
  2. SAMSCA [Suspect]
     Indication: FLUID RETENTION
     Dosage: 15 MG MILLIGRAM(S), QD, ORAL ; 7.5 MG MILLIGRAM(S), QD, ORAL
     Route: 048
     Dates: start: 20110730, end: 20110731
  3. DOBUTREX [Concomitant]
  4. DIGOXIN [Concomitant]
  5. ZOLPIDEM TARTRATE [Concomitant]
  6. JANUVIA [Concomitant]
  7. ESTAZOLAM [Concomitant]
  8. SEISHOKU (SODIUM CHLORIDE) [Concomitant]
  9. DEXTROSE 5% [Concomitant]
  10. ALDATONE S (SPIRONOLACTONE) [Concomitant]
  11. ASPIRIN [Concomitant]
  12. SODIUM CHLORIDE 0.9% [Concomitant]
  13. TAKEPRON (LANSOPRAZOLE) [Concomitant]
  14. LASIX [Concomitant]
  15. VERAPAMIL HYDROCHLORIDE [Concomitant]
  16. HUMULIN R [Concomitant]
  17. LACTEC (CALCIUM CHLORIDE DIHYDRATE, POTASSIUM CHLORIDE, SODIUM LACTATE [Concomitant]
  18. LASIX [Concomitant]
  19. SODIUM CHLORIDE 0.9% [Concomitant]

REACTIONS (8)
  - RENAL FAILURE ACUTE [None]
  - BRADYCARDIA [None]
  - CARDIAC FAILURE [None]
  - HYPONATRAEMIA [None]
  - VENTRICULAR TACHYCARDIA [None]
  - RESPIRATORY ARREST [None]
  - BLOOD PRESSURE DECREASED [None]
  - HYPERKALAEMIA [None]
